FAERS Safety Report 7265691-9 (Version None)
Quarter: 2011Q1

REPORT INFORMATION
  Report Type: 
  Country: None (occurrence: None)
  Receive Date: 20110120
  Receipt Date: 20110113
  Transmission Date: 20110831
  Serious: Yes (Hospitalization)
  Sender: FDA-Public Use
  Company Number: 2010SP064031

PATIENT

DRUGS (1)
  1. TEMODAL [Suspect]
     Indication: BRAIN STEM GLIOMA
     Dosage: 85 MG/M2; QD; PO
     Route: 048

REACTIONS (3)
  - BRAIN STEM GLIOMA [None]
  - SHUNT INFECTION [None]
  - COAGULOPATHY [None]
